FAERS Safety Report 12404193 (Version 2)
Quarter: 2016Q2

REPORT INFORMATION
  Report Type: Spontaneous
  Country: ID (occurrence: ID)
  Receive Date: 20160525
  Receipt Date: 20160531
  Transmission Date: 20160815
  Serious: Yes (Life-Threatening, Hospitalization)
  Sender: FDA-Public Use
  Company Number: ID-JNJFOC-20160521050

PATIENT
  Age: 24 Year
  Sex: Female

DRUGS (2)
  1. SIMPONI [Suspect]
     Active Substance: GOLIMUMAB
     Indication: RHEUMATOID ARTHRITIS
     Route: 058
     Dates: start: 20160416
  2. METHOTREXATE [Concomitant]
     Active Substance: METHOTREXATE
     Route: 065

REACTIONS (3)
  - Pyrexia [Unknown]
  - Mouth ulceration [Unknown]
  - Vasculitis [Unknown]

NARRATIVE: CASE EVENT DATE: 20160516
